FAERS Safety Report 10255171 (Version 1)
Quarter: 2014Q2

REPORT INFORMATION
  Report Type: Report from Study
  Country: NZ (occurrence: NZ)
  Receive Date: 20140624
  Receipt Date: 20140624
  Transmission Date: 20141212
  Serious: Yes (Hospitalization, Other)
  Sender: FDA-Public Use
  Company Number: NZ-BAYER-2014-092894

PATIENT
  Sex: Male

DRUGS (2)
  1. CIPROFLOXACIN MONOHYDROCHLORIDE [Suspect]
     Indication: PREOPERATIVE CARE
     Dosage: 500 MG, BID
     Route: 048
  2. AMOXICILLIN W/CLAVULANIC ACID [Suspect]
     Indication: PREOPERATIVE CARE
     Dosage: 625 MG, BID
     Route: 048

REACTIONS (4)
  - Sepsis syndrome [None]
  - Drug resistance [None]
  - Drug ineffective for unapproved indication [None]
  - Off label use [None]
